FAERS Safety Report 9256164 (Version 1)
Quarter: 2013Q2

REPORT INFORMATION
  Report Type: Spontaneous
  Country: US (occurrence: US)
  Receive Date: 20130425
  Receipt Date: 20130425
  Transmission Date: 20140414
  Serious: No
  Sender: FDA-Public Use
  Company Number: US-AMGEN-USASP2012046316

PATIENT
  Age: 64 Year
  Sex: Female
  Weight: 96.4 kg

DRUGS (10)
  1. PEGFILGRASTIM [Suspect]
     Indication: BREAST CANCER
     Dosage: 6 MG, UNK
     Route: 058
     Dates: start: 20081016, end: 20111126
  2. PEGFILGRASTIM [Suspect]
     Indication: BREAST CANCER
  3. BEVACIZUMAB [Suspect]
     Indication: BREAST CANCER
     Dosage: UNK
     Route: 042
     Dates: start: 20081016, end: 20081125
  4. BEVACIZUMAB [Suspect]
     Indication: BREAST CANCER
  5. CYCLOPHOSPHAMIDE [Suspect]
     Indication: BREAST CANCER
     Dosage: UNK
     Route: 042
     Dates: start: 20081016, end: 20081125
  6. CYCLOPHOSPHAMIDE [Suspect]
     Indication: BREAST CANCER
  7. DOXORUBICIN HCL [Concomitant]
     Indication: BREAST CANCER
     Dosage: UNK
     Dates: start: 20081016, end: 20081125
  8. DOXORUBICIN HCL [Concomitant]
     Indication: BREAST CANCER
  9. PACLITAXEL [Concomitant]
     Indication: BREAST CANCER
     Dosage: 80 MG/M2, UNK
     Route: 042
     Dates: start: 20081016
  10. PACLITAXEL [Concomitant]
     Indication: BREAST CANCER

REACTIONS (1)
  - Ejection fraction decreased [Recovered/Resolved]
